FAERS Safety Report 6264324-8 (Version None)
Quarter: 2009Q3

REPORT INFORMATION
  Report Type: 
  Country: None (occurrence: None)
  Receive Date: 20090710
  Receipt Date: 20090701
  Transmission Date: 20100115
  Serious: Yes (Other)
  Sender: FDA-Public Use
  Company Number: A0793389A

PATIENT
  Sex: Female

DRUGS (2)
  1. LAMICTAL [Suspect]
     Indication: BIPOLAR DISORDER
     Dosage: 50MG CUMULATIVE DOSE
     Route: 048
  2. SAINT JOHNS WORT [Suspect]

REACTIONS (24)
  - AGGRESSION [None]
  - ANGER [None]
  - BIPOLAR DISORDER [None]
  - DEPRESSED MOOD [None]
  - DEPRESSION [None]
  - DIPLOPIA [None]
  - DIZZINESS [None]
  - DIZZINESS POSTURAL [None]
  - ELEVATED MOOD [None]
  - ERYTHEMA [None]
  - EUPHORIC MOOD [None]
  - EYELID PTOSIS [None]
  - FEELING OF RELAXATION [None]
  - FLUSHING [None]
  - HEADACHE [None]
  - HUNGER [None]
  - INAPPROPRIATE AFFECT [None]
  - MOOD SWINGS [None]
  - PARAESTHESIA [None]
  - PRURITUS [None]
  - SOMNOLENCE [None]
  - SUICIDAL IDEATION [None]
  - VIOLENCE-RELATED SYMPTOM [None]
  - VISION BLURRED [None]
